FAERS Safety Report 25932091 (Version 2)
Quarter: 2025Q4

REPORT INFORMATION
  Report Type: Report from Study
  Country: GB (occurrence: GB)
  Receive Date: 20251016
  Receipt Date: 20251030
  Transmission Date: 20260117
  Serious: Yes (Other)
  Sender: EMD SERONO INC
  Company Number: GB-Merck Healthcare KGaA-2025051558

PATIENT
  Age: 46 Year
  Sex: Female
  Weight: 91 kg

DRUGS (4)
  1. MAVENCLAD [Suspect]
     Active Substance: CLADRIBINE
     Indication: Multiple sclerosis
     Dosage: YEAR ONE WEEK ONE THERAPY: TWO TABLET ON DAYS 1 TO 3 AND ONE TABLET ON DAYS 4 AND 5
     Dates: start: 20210420
  2. MAVENCLAD [Suspect]
     Active Substance: CLADRIBINE
     Dosage: YEAR ONE WEEK FIVE THERAPY: TWO TABLET ON DAY 1 TO 2 AND ONE TABLET ON DAYS 3 TO 5
     Dates: start: 20210525
  3. MAVENCLAD [Suspect]
     Active Substance: CLADRIBINE
     Dosage: YEAR TWO WEEK ONE THERAPY: TWO TABLET ON DAYS 1 TO 3 AND ONE TABLET ON DAYS 4 AND 5
     Dates: start: 20220418
  4. MAVENCLAD [Suspect]
     Active Substance: CLADRIBINE
     Dosage: YEAR TWO WEEK FIVE THERAPY: TWO TABLET ON DAY 1 TO 2 AND ONE TABLET ON DAYS 3 TO 5
     Dates: start: 20220516

REACTIONS (3)
  - Cerebrovascular accident [Unknown]
  - Multiple sclerosis [Unknown]
  - Urinary tract infection [Unknown]

NARRATIVE: CASE EVENT DATE: 20231001
